FAERS Safety Report 4906895-7 (Version None)
Quarter: 2006Q1

REPORT INFORMATION
  Report Type: 
  Country: None (occurrence: None)
  Receive Date: 20060207
  Receipt Date: 20050822
  Transmission Date: 20060701
  Serious: Yes (Hospitalization)
  Sender: FDA-Public Use
  Company Number: 200508IM000435

PATIENT
  Age: 51 Year
  Sex: Male

DRUGS (4)
  1. INTERFERON ALFACON-1 [Suspect]
     Indication: HEPATITIS C
     Dosage: 15 UG, QD, SUBCUTANEOUS
     Route: 058
     Dates: start: 20050118, end: 20051001
  2. RIBAVIRIN [Suspect]
     Indication: HEPATITIS C
     Dates: start: 20050118, end: 20051001
  3. MIRTAZAPINE [Concomitant]
  4. ACETAMINOPHEN [Concomitant]

REACTIONS (5)
  - ANGINA PECTORIS [None]
  - CORONARY ARTERY DISEASE [None]
  - CORONARY ARTERY STENOSIS [None]
  - THERAPY NON-RESPONDER [None]
  - VENTRICULAR HYPERTROPHY [None]
